FAERS Safety Report 17768612 (Version 4)
Quarter: 2025Q1

REPORT INFORMATION
  Report Type: Report from Study
  Country: US (occurrence: US)
  Receive Date: 20200512
  Receipt Date: 20250313
  Transmission Date: 20250409
  Serious: Yes (Death, Other)
  Sender: TAKEDA
  Company Number: US-SHIRE-US202015917

PATIENT
  Age: 77 Year
  Sex: Female
  Weight: 40.816 kg

DRUGS (23)
  1. HUMAN IMMUNOGLOBULIN G [Suspect]
     Active Substance: HUMAN IMMUNOGLOBULIN G
     Indication: Immunodeficiency common variable
     Dosage: 5 GRAM, 2/WEEK
     Dates: start: 20110908
  2. HUMAN IMMUNOGLOBULIN G [Suspect]
     Active Substance: HUMAN IMMUNOGLOBULIN G
     Dosage: 5 GRAM, 2/WEEK
     Dates: start: 20110912
  3. HUMAN IMMUNOGLOBULIN G [Suspect]
     Active Substance: HUMAN IMMUNOGLOBULIN G
     Dosage: 7 GRAM, 2/WEEK
  4. DIPHENHYDRAMINE [Concomitant]
     Active Substance: DIPHENHYDRAMINE
  5. NUCALA [Concomitant]
     Active Substance: MEPOLIZUMAB
  6. SYMBICORT [Concomitant]
     Active Substance: BUDESONIDE\FORMOTEROL FUMARATE DIHYDRATE
  7. EPINEPHRINE [Concomitant]
     Active Substance: EPINEPHRINE
  8. LIDOCAINE\PRILOCAINE [Concomitant]
     Active Substance: LIDOCAINE\PRILOCAINE
  9. Calcium + magnesium + zink [Concomitant]
  10. FISH OIL [Concomitant]
     Active Substance: FISH OIL
  11. Sarna [Concomitant]
  12. ALBUTEROL SULFATE [Concomitant]
     Active Substance: ALBUTEROL SULFATE
  13. LOSARTAN POTASSIUM [Concomitant]
     Active Substance: LOSARTAN POTASSIUM
  14. FOLIC ACID [Concomitant]
     Active Substance: FOLIC ACID
  15. VITAMIN E [Concomitant]
     Active Substance: .ALPHA.-TOCOPHEROL
  16. VITAMIN D3 [Concomitant]
     Active Substance: CHOLECALCIFEROL
  17. LOSARTAN [Concomitant]
     Active Substance: LOSARTAN
  18. CLOTRIMAZOLE [Concomitant]
     Active Substance: CLOTRIMAZOLE
  19. RECLAST [Concomitant]
     Active Substance: ZOLEDRONIC ACID
  20. MINERALS\VITAMINS [Concomitant]
     Active Substance: MINERALS\VITAMINS
  21. DIPHENHYDRAMINE HYDROCHLORIDE [Concomitant]
     Active Substance: DIPHENHYDRAMINE HYDROCHLORIDE
  22. MONTELUKAST SODIUM [Concomitant]
     Active Substance: MONTELUKAST SODIUM
  23. VITAMIN D3 [Concomitant]
     Active Substance: CHOLECALCIFEROL

REACTIONS (8)
  - Death [Fatal]
  - Paranasal sinus discomfort [Unknown]
  - Nasal pruritus [Unknown]
  - Sinus disorder [Unknown]
  - Arthritis [Unknown]
  - Parainfluenzae virus infection [Unknown]
  - Hypoaesthesia [Unknown]
  - Hypersensitivity [Unknown]

NARRATIVE: CASE EVENT DATE: 20211107
